FAERS Safety Report 10978481 (Version 1)
Quarter: 2015Q1

REPORT INFORMATION
  Report Type: Spontaneous
  Country: US (occurrence: None)
  Receive Date: 20150226
  Receipt Date: 20150226
  Transmission Date: 20150721
  Serious: No
  Sender: FDA-Public Use
  Company Number: TPA2009A02776

PATIENT
  Age: 39 Year
  Sex: Female
  Weight: 59.88 kg

DRUGS (1)
  1. ULORIC [Suspect]
     Active Substance: FEBUXOSTAT
     Indication: NEPHROLITHIASIS
     Dosage: 40 MG, 1 IN 1 D, PER ORAL
     Route: 048
     Dates: start: 200908, end: 20090916

REACTIONS (2)
  - Condition aggravated [None]
  - Vision blurred [None]

NARRATIVE: CASE EVENT DATE: 20090915
